FAERS Safety Report 8511271 (Version 2)
Quarter: 2015Q1

REPORT INFORMATION
  Report Type: Spontaneous
  Country: US (occurrence: US)
  Receive Date: 20120413
  Receipt Date: 20150319
  Transmission Date: 20150721
  Serious: No
  Sender: FDA-Public Use
  Company Number: US-ASTRAZENECA-2011SE64112

PATIENT
  Age: 65 Year
  Sex: Female

DRUGS (2)
  1. NEXIUM [Suspect]
     Active Substance: ESOMEPRAZOLE MAGNESIUM
     Route: 048
  2. NEXIUM [Suspect]
     Active Substance: ESOMEPRAZOLE MAGNESIUM
     Route: 048

REACTIONS (10)
  - Abdominal pain upper [Unknown]
  - Drug ineffective [Unknown]
  - Tongue ulceration [Unknown]
  - Dry throat [Unknown]
  - Diarrhoea [Unknown]
  - Lip pain [Unknown]
  - Adverse event [Unknown]
  - Fall [Unknown]
  - Malaise [Unknown]
  - Back pain [Unknown]
